FAERS Safety Report 16654960 (Version 1)
Quarter: 2019Q3

REPORT INFORMATION
  Report Type: Spontaneous
  Country: US (occurrence: US)
  Receive Date: 20190801
  Receipt Date: 20190801
  Transmission Date: 20191004
  Serious: No
  Sender: FDA-Public Use
  Company Number: US-GLAXOSMITHKLINE-US2019136622

PATIENT
  Age: 92 Year
  Sex: Female

DRUGS (2)
  1. ABREVA [Suspect]
     Active Substance: DOCOSANOL
     Indication: ORAL HERPES
     Dosage: UNK, TID (FOR 4 DAYS)
     Dates: start: 20190720, end: 20190724
  2. ABREVA [Suspect]
     Active Substance: DOCOSANOL
     Dosage: UNK, TID (FOR 4 DAYS)
     Dates: start: 20190720, end: 20190724

REACTIONS (5)
  - Oral herpes [Unknown]
  - Drug hypersensitivity [Unknown]
  - Wrong technique in product usage process [Unknown]
  - Inappropriate schedule of product administration [Unknown]
  - Condition aggravated [Unknown]
